FAERS Safety Report 14250493 (Version 1)
Quarter: 2017Q4

REPORT INFORMATION
  Report Type: Other
  Country: DE (occurrence: DE)
  Receive Date: 20171205
  Receipt Date: 20171205
  Transmission Date: 20180321
  Serious: No
  Sender: FDA-Public Use
  Company Number: DE-LUPIN PHARMACEUTICALS INC.-2017-05643

PATIENT
  Sex: Male
  Weight: 180 kg

DRUGS (4)
  1. ATORVASTATIN [Suspect]
     Active Substance: ATORVASTATIN
     Indication: CORONARY ARTERY DISEASE
     Route: 065
     Dates: end: 2013
  2. SIMVASTATIN. [Suspect]
     Active Substance: SIMVASTATIN
     Indication: CEREBRAL INFARCTION
     Dosage: 40 MG, UNK
     Route: 065
     Dates: end: 2010
  3. PRAVASTATIN. [Suspect]
     Active Substance: PRAVASTATIN
     Indication: CEREBRAL ARTERIOSCLEROSIS
     Dosage: UNK
     Route: 065
     Dates: end: 2017
  4. SIMVASTATIN. [Suspect]
     Active Substance: SIMVASTATIN
     Dosage: UNK
     Route: 065

REACTIONS (1)
  - Myalgia [Not Recovered/Not Resolved]
